FAERS Safety Report 23819227 (Version 2)
Quarter: 2024Q2

REPORT INFORMATION
  Report Type: Report from Study
  Country: TH (occurrence: None)
  Receive Date: 20240506
  Receipt Date: 20240514
  Transmission Date: 20240716
  Serious: Yes (Death)
  Sender: FDA-Public Use
  Company Number: 2024A105774

PATIENT
  Age: 22230 Day
  Sex: Female

DRUGS (1)
  1. TAGRISSO [Suspect]
     Active Substance: OSIMERTINIB
     Route: 048
     Dates: start: 20210820, end: 20240501

REACTIONS (3)
  - Metastases to lymph nodes [Fatal]
  - Metastases to central nervous system [Fatal]
  - Metastases to bone [Fatal]

NARRATIVE: CASE EVENT DATE: 20240501
